FAERS Safety Report 8797127 (Version 2)
Quarter: 2012Q4

REPORT INFORMATION
  Report Type: Report from Study
  Country: US (occurrence: US)
  Receive Date: 20120919
  Receipt Date: 20121203
  Transmission Date: 20130627
  Serious: Yes (Hospitalization)
  Sender: FDA-Public Use
  Company Number: US-ROCHE-1078135

PATIENT
  Age: 54 Year
  Sex: Male
  Weight: 100 kg

DRUGS (3)
  1. PEG-INTERFERON ALFA 2A [Suspect]
     Indication: CHRONIC HEPATITIS C
     Dosage: most recent dose 22/Apr/2012
     Route: 065
     Dates: start: 20120318
  2. RIBAVIRIN [Suspect]
     Indication: CHRONIC HEPATITIS C
     Dosage: most recent dose 28/Apr/2012
     Route: 065
     Dates: start: 20120318
  3. TELAPREVIR [Suspect]
     Indication: CHRONIC HEPATITIS C
     Dosage: most recent dose 28/Apr/2012
     Route: 065
     Dates: start: 20120318

REACTIONS (1)
  - Haemorrhoidal haemorrhage [Recovered/Resolved with Sequelae]
